FAERS Safety Report 6403021-2 (Version None)
Quarter: 2009Q4

REPORT INFORMATION
  Report Type: 
  Country: None (occurrence: None)
  Receive Date: 20091014
  Receipt Date: 20091014
  Transmission Date: 20100525
  Serious: Yes (Other)
  Sender: FDA-Public Use
  Company Number: None

PATIENT
  Age: 77 Year
  Sex: Male
  Weight: 99.7913 kg

DRUGS (2)
  1. FLOMAX [Suspect]
     Dosage: 1-NIGHTLY
     Dates: start: 20090828
  2. FLOMAX [Suspect]
     Dosage: 1-NIGHTLY
     Dates: start: 20090912

REACTIONS (2)
  - BLOOD PRESSURE DECREASED [None]
  - DIZZINESS [None]
